FAERS Safety Report 15515831 (Version 1)
Quarter: 2018Q4

REPORT INFORMATION
  Report Type: Report from Study
  Country: US (occurrence: US)
  Receive Date: 20181017
  Receipt Date: 20181017
  Transmission Date: 20190205
  Serious: Yes (Other)
  Sender: FDA-Public Use
  Company Number: US-AUROBINDO-AUR-APL-2018-050130

PATIENT
  Age: 82 Year
  Sex: Female
  Weight: 67.5 kg

DRUGS (3)
  1. LEVOFLOXACIN. [Suspect]
     Active Substance: LEVOFLOXACIN
     Dosage: 750 MILLIGRAM
     Route: 042
  2. LEVOFLOXACIN. [Suspect]
     Active Substance: LEVOFLOXACIN
     Indication: URINARY TRACT INFECTION
     Dosage: 750 MILLIGRAM ONE DOSE
     Route: 048
  3. QUETIAPINE. [Concomitant]
     Active Substance: QUETIAPINE
     Indication: PRODUCT USED FOR UNKNOWN INDICATION
     Dosage: 50 MILLIGRAM, DAILY
     Route: 065

REACTIONS (4)
  - Neurotoxicity [Recovered/Resolved]
  - Condition aggravated [Recovered/Resolved]
  - Muscle twitching [Recovered/Resolved]
  - Myoclonus [Recovered/Resolved]
